FAERS Safety Report 23519262 (Version 2)
Quarter: 2024Q2

REPORT INFORMATION
  Report Type: Spontaneous
  Country: US (occurrence: US)
  Receive Date: 20240213
  Receipt Date: 20240429
  Transmission Date: 20240715
  Serious: No
  Sender: FDA-Public Use
  Company Number: US-SA-SAC20240205001647

PATIENT
  Age: 10 Year
  Sex: Male
  Weight: 29.937 kg

DRUGS (1)
  1. DUPIXENT [Suspect]
     Active Substance: DUPILUMAB
     Indication: Eczema
     Dosage: 200 MG, QOW
     Route: 058
     Dates: start: 20230920, end: 202403

REACTIONS (3)
  - Pruritus [Not Recovered/Not Resolved]
  - Eczema [Unknown]
  - Rash [Not Recovered/Not Resolved]
